FAERS Safety Report 17865666 (Version 1)
Quarter: 2020Q2

REPORT INFORMATION
  Report Type: Spontaneous
  Country: US (occurrence: US)
  Receive Date: 20200605
  Receipt Date: 20200605
  Transmission Date: 20200714
  Serious: No
  Sender: FDA-Public Use
  Company Number: US-TEVA-2020-US-1244712

PATIENT
  Sex: Female
  Weight: 74.84 kg

DRUGS (1)
  1. OXYBUTYNIN. [Suspect]
     Active Substance: OXYBUTYNIN CHLORIDE
     Indication: HYPERTONIC BLADDER
     Dosage: 4 MILLIGRAM DAILY; 4MG; ONCE A DAY BY MOUTH
     Route: 048

REACTIONS (6)
  - Urine output increased [Unknown]
  - Drug ineffective [Unknown]
  - Product substitution issue [Unknown]
  - Diarrhoea [Unknown]
  - Malaise [Unknown]
  - Nausea [Unknown]
